FAERS Safety Report 13167722 (Version 1)
Quarter: 2017Q1

REPORT INFORMATION
  Report Type: Other
  Country: CA (occurrence: CA)
  Receive Date: 20170131
  Receipt Date: 20170131
  Transmission Date: 20170428
  Serious: Yes (Other)
  Sender: FDA-Public Use
  Company Number: CA-LANTHEUS-LMI-2017-00026

PATIENT
  Age: 68 Year
  Sex: Female
  Weight: 105 kg

DRUGS (2)
  1. GALLIUM [Suspect]
     Active Substance: GALLIUM CITRATE GA-67
     Indication: RADIOISOTOPE SCAN
     Dosage: 185 MBQ, SINGLE
     Route: 042
     Dates: start: 20160330, end: 20160330
  2. DRAXIMAGE MDP [Suspect]
     Active Substance: TECHNETIUM TC-99M MEDRONATE
     Indication: RADIOISOTOPE SCAN
     Dosage: 1040 MBQ, SINGLE
     Route: 042
     Dates: start: 20160330, end: 20160330

REACTIONS (2)
  - Rash generalised [Not Recovered/Not Resolved]
  - Yellow skin [Not Recovered/Not Resolved]

NARRATIVE: CASE EVENT DATE: 20160403
